FAERS Safety Report 4510664-X (Version None)
Quarter: 2004Q4

REPORT INFORMATION
  Report Type: 
  Country: None (occurrence: None)
  Receive Date: 20041025
  Receipt Date: 20040129
  Transmission Date: 20050328
  Serious: Yes (Other)
  Sender: FDA-Public Use
  Company Number: NSADSS2002039075

PATIENT
  Age: 65 Year
  Sex: Female

DRUGS (6)
  1. REMICADE [Suspect]
     Indication: CROHN'S DISEASE
     Dosage: SEE IMAGE INTRAVENOUS DRIP
     Route: 041
     Dates: start: 20010501, end: 20010501
  2. REMICADE [Suspect]
     Indication: CROHN'S DISEASE
     Dosage: SEE IMAGE INTRAVENOUS DRIP
     Route: 041
     Dates: start: 20010801, end: 20010801
  3. REMICADE [Suspect]
     Indication: CROHN'S DISEASE
     Dosage: SEE IMAGE INTRAVENOUS DRIP
     Route: 041
     Dates: start: 20030101, end: 20030101
  4. REMICADE [Suspect]
     Indication: CROHN'S DISEASE
     Dosage: SEE IMAGE INTRAVENOUS DRIP
     Route: 041
     Dates: start: 20031107, end: 20031107
  5. PREDNISONE [Concomitant]
  6. PENTASA [Concomitant]

REACTIONS (2)
  - CONDITION AGGRAVATED [None]
  - MULTIPLE SCLEROSIS [None]
